FAERS Safety Report 5801154-2 (Version None)
Quarter: 2008Q3

REPORT INFORMATION
  Report Type: 
  Country: None (occurrence: None)
  Receive Date: 20080707
  Receipt Date: 20080701
  Transmission Date: 20090109
  Serious: Yes (Life-Threatening, Hospitalization, Other)
  Sender: FDA-Public Use
  Company Number: PHHY2008AU08027

PATIENT
  Sex: Male

DRUGS (5)
  1. CLOZARIL [Suspect]
     Indication: SCHIZOPHRENIA
     Dosage: 300 MG,DAY
     Dates: start: 20080418, end: 20080512
  2. RISPERIDONE [Concomitant]
     Dosage: 50 MG, UNK
     Route: 030
  3. ATORVASTATIN [Concomitant]
  4. COCAINE [Concomitant]
  5. AMPHETAMINE SULFATE [Concomitant]

REACTIONS (11)
  - ATELECTASIS [None]
  - CARDIAC ARREST [None]
  - CARDITIS [None]
  - CHEST PAIN [None]
  - DYSPNOEA [None]
  - EOSINOPHIL COUNT INCREASED [None]
  - EPSTEIN-BARR VIRUS ANTIBODY POSITIVE [None]
  - MYOCARDITIS [None]
  - PERICARDITIS [None]
  - REGURGITATION [None]
  - TROPONIN T INCREASED [None]
